FAERS Safety Report 16063931 (Version 1)
Quarter: 2019Q1

REPORT INFORMATION
  Report Type: Spontaneous
  Country: US (occurrence: US)
  Receive Date: 20190312
  Receipt Date: 20190312
  Transmission Date: 20190418
  Serious: Yes (Other)
  Sender: FDA-Public Use
  Company Number: US-BAYER-2019-047603

PATIENT
  Age: 62 Year

DRUGS (3)
  1. REGORAFENIB. [Suspect]
     Active Substance: REGORAFENIB
     Indication: ADENOCARCINOMA OF COLON
     Dosage: CYCLE 3 OF 120MG, 3 WEEKS ON 1 WEEK OFF
  2. REGORAFENIB. [Suspect]
     Active Substance: REGORAFENIB
     Indication: ADENOCARCINOMA OF COLON
     Dosage: CYCLE 1 REDUCED DOSE
  3. REGORAFENIB. [Suspect]
     Active Substance: REGORAFENIB
     Indication: ADENOCARCINOMA OF COLON
     Dosage: CYCLE 2 UNKNOWN DOSE

REACTIONS (2)
  - Mucosal inflammation [None]
  - Adenocarcinoma of colon [None]
